FAERS Safety Report 5029311-6 (Version None)
Quarter: 2006Q2

REPORT INFORMATION
  Report Type: 
  Country: None (occurrence: None)
  Receive Date: 20060616
  Receipt Date: 20060616
  Transmission Date: 20061013
  Serious: Yes (Hospitalization)
  Sender: FDA-Public Use
  Company Number: None

PATIENT
  Age: 84 Year
  Weight: 73.6 kg

DRUGS (4)
  1. LINEZOLID [Suspect]
     Indication: PNEUMONIA
     Dosage: 600 MG BID IV DRIP
     Route: 041
     Dates: start: 20060519, end: 20060606
  2. LINEZOLID [Suspect]
     Indication: UROSEPSIS
     Dosage: 600 MG BID IV DRIP
     Route: 041
     Dates: start: 20060519, end: 20060606
  3. ZOSYN [Suspect]
     Indication: PNEUMONIA
     Dosage: 3.37 GM Q56H IV DRIP
     Route: 041
     Dates: start: 20060523, end: 20060606
  4. ZOSYN [Suspect]
     Indication: UROSEPSIS
     Dosage: 3.37 GM Q56H IV DRIP
     Route: 041
     Dates: start: 20060523, end: 20060606

REACTIONS (3)
  - HAEMOPTYSIS [None]
  - MUCOUS MEMBRANE DISORDER [None]
  - THROMBOCYTOPENIA [None]
